FAERS Safety Report 8210542-9 (Version None)
Quarter: 2012Q1

REPORT INFORMATION
  Report Type: 
  Country: None (occurrence: None)
  Receive Date: 20120314
  Receipt Date: 20111121
  Transmission Date: 20120608
  Serious: No
  Sender: FDA-Public Use
  Company Number: US-ASTRAZENECA-2011SE70791

PATIENT
  Sex: Male

DRUGS (1)
  1. TOPROL-XL [Suspect]
     Route: 048

REACTIONS (9)
  - DRUG HYPERSENSITIVITY [None]
  - HEARING IMPAIRED [None]
  - DRY MOUTH [None]
  - CONSTIPATION [None]
  - NAUSEA [None]
  - ABDOMINAL DISCOMFORT [None]
  - INSOMNIA [None]
  - GASTRIC DISORDER [None]
  - ARTHRITIS [None]
